APPROVED DRUG PRODUCT: TAO
Active Ingredient: TROLEANDOMYCIN
Strength: EQ 250MG BASE
Dosage Form/Route: CAPSULE;ORAL
Application: N050336 | Product #002
Applicant: PFIZER PHARMACEUTICALS INC
Approved: Approved Prior to Jan 1, 1982 | RLD: No | RS: No | Type: DISCN